FAERS Safety Report 8308691-X (Version None)
Quarter: 2012Q2

REPORT INFORMATION
  Report Type: 
  Country: None (occurrence: None)
  Receive Date: 20120420
  Receipt Date: 20120411
  Transmission Date: 20120825
  Serious: Yes (Hospitalization)
  Sender: FDA-Public Use
  Company Number: ACO_27788_2011

PATIENT
  Age: 55 Year
  Sex: Female

DRUGS (12)
  1. VITAMIN D [Concomitant]
  2. ACETAMINOPHEN [Concomitant]
  3. PHYTONADIONE [Concomitant]
  4. FAMPRIDINE-SR (FAMPRIDINE) TABLET [Suspect]
     Indication: MULTIPLE SCLEROSIS
     Dosage: 10 MG, QD, ORAL
     Route: 048
     Dates: start: 20040517
  5. CALCIUM (CALCIUM GLUCONATE) [Concomitant]
  6. IBUPROFEN [Concomitant]
  7. FLUOXETINE [Concomitant]
  8. OMEGA-3-ACID ETHYL ESTERS (LOVAZA) [Concomitant]
  9. RISEDRONATE SODIUM [Concomitant]
  10. ZOPICLONE (ZOPICLONE) [Concomitant]
  11. VITAMIN B COMPLEC (VITAMIN B COMPLEX) [Concomitant]
  12. MODAFINIL [Concomitant]

REACTIONS (4)
  - RADIUS FRACTURE [None]
  - FALL [None]
  - FRACTURE DISPLACEMENT [None]
  - ULNA FRACTURE [None]
